FAERS Safety Report 12328366 (Version 2)
Quarter: 2016Q2

REPORT INFORMATION
  Report Type: Report from Study
  Country: US (occurrence: US)
  Receive Date: 20160503
  Receipt Date: 20160513
  Transmission Date: 20160815
  Serious: Yes (Hospitalization, Other)
  Sender: FDA-Public Use
  Company Number: US-GILEAD-2016-0209680

PATIENT
  Age: 77 Year
  Sex: Female
  Weight: 63.95 kg

DRUGS (1)
  1. IDELALISIB [Suspect]
     Active Substance: IDELALISIB
     Indication: CHRONIC LYMPHOCYTIC LEUKAEMIA
     Dosage: 150 MG, BID
     Route: 048
     Dates: start: 20141027

REACTIONS (2)
  - Coronary arterial stent insertion [Unknown]
  - Dyspnoea [Unknown]

NARRATIVE: CASE EVENT DATE: 201604
